FAERS Safety Report 12627182 (Version 1)
Quarter: 2016Q3

REPORT INFORMATION
  Report Type: Spontaneous
  Country: US (occurrence: US)
  Receive Date: 20160805
  Receipt Date: 20160805
  Transmission Date: 20161109
  Serious: Yes (Hospitalization, Disabling, Other)
  Sender: FDA-Public Use
  Company Number: US-SAOL THERAPEUTICS-2016SAO00332

PATIENT
  Age: 49 Year
  Sex: Female

DRUGS (4)
  1. BACLOFEN. [Suspect]
     Active Substance: BACLOFEN
     Indication: MUSCLE SPASTICITY
     Dosage: UNK
     Route: 037
     Dates: end: 20131230
  2. LIORESAL [Suspect]
     Active Substance: BACLOFEN
     Indication: MUSCLE SPASTICITY
     Dosage: 986.2 ?G, \DAY
     Route: 037
     Dates: start: 20131230
  3. DILAUDID [Suspect]
     Active Substance: HYDROMORPHONE HYDROCHLORIDE
     Dosage: 4.197 MG, \DAY
     Route: 037
  4. MORPHINE [Suspect]
     Active Substance: MORPHINE
     Dosage: UNK
     Route: 037
     Dates: end: 20140903

REACTIONS (27)
  - Balance disorder [Unknown]
  - Muscular dystrophy [Unknown]
  - Vertigo [Unknown]
  - Brain injury [Unknown]
  - Therapy non-responder [Unknown]
  - Activities of daily living impaired [Not Recovered/Not Resolved]
  - Muscle atrophy [Unknown]
  - Lordosis [Not Recovered/Not Resolved]
  - Pain [Unknown]
  - Wrong drug administered [Unknown]
  - Overdose [Unknown]
  - Nervous system disorder [Unknown]
  - Gastrointestinal disorder [Unknown]
  - Hemiparesis [Unknown]
  - Tinnitus [Unknown]
  - Gait disturbance [Unknown]
  - Muscle spasticity [Unknown]
  - Visual impairment [Unknown]
  - Hernia [Unknown]
  - Accidental overdose [Unknown]
  - Nystagmus [Unknown]
  - Drug dependence [Unknown]
  - Urinary incontinence [Unknown]
  - Neuralgia [Unknown]
  - Neuropathy peripheral [Unknown]
  - Kyphosis [Not Recovered/Not Resolved]
  - Incorrect route of drug administration [Unknown]

NARRATIVE: CASE EVENT DATE: 2010
